FAERS Safety Report 7099294-6 (Version None)
Quarter: 2010Q4

REPORT INFORMATION
  Report Type: 
  Country: None (occurrence: None)
  Receive Date: 20101112
  Receipt Date: 20101102
  Transmission Date: 20110411
  Serious: Yes (Hospitalization)
  Sender: FDA-Public Use
  Company Number: PHHY2010FR61234

PATIENT
  Sex: Male

DRUGS (6)
  1. NEORAL [Suspect]
     Dosage: 50 MG, QD
     Route: 048
     Dates: start: 20100822
  2. COLCHIMAX [Suspect]
     Dosage: 2 DF, UNK
     Dates: start: 20100828, end: 20100830
  3. COLCHIMAX [Suspect]
     Dosage: 2 DF, UNK
     Dates: start: 20100829
  4. COLCHIMAX [Suspect]
     Dosage: 1 DF, UNK
     Dates: start: 20100830
  5. CORTANCYL [Concomitant]
  6. ASPEGIC 1000 [Concomitant]

REACTIONS (4)
  - BLOOD URIC ACID INCREASED [None]
  - DIARRHOEA [None]
  - GOUT [None]
  - NEUTROPENIA [None]
